FAERS Safety Report 10571410 (Version 3)
Quarter: 2014Q4

REPORT INFORMATION
  Report Type: Report from Study
  Country: CA (occurrence: CA)
  Receive Date: 20141107
  Receipt Date: 20141126
  Transmission Date: 20150529
  Serious: Yes (Hospitalization)
  Sender: FDA-Public Use
  Company Number: CA-GILEAD-2014-0121212

PATIENT
  Age: 84 Year
  Sex: Male
  Weight: 72.4 kg

DRUGS (24)
  1. HYDROCORTISONE. [Concomitant]
     Active Substance: HYDROCORTISONE
     Route: 061
  2. ELIQUIS [Concomitant]
     Active Substance: APIXABAN
     Indication: ATRIAL FIBRILLATION
     Dosage: UNK
     Route: 048
     Dates: start: 20140403
  3. BENADRYL [Concomitant]
     Active Substance: DIPHENHYDRAMINE HYDROCHLORIDE
     Indication: ALLERGY PROPHYLAXIS
     Dosage: UNK
     Route: 042
     Dates: start: 20141016
  4. AVAPRO [Concomitant]
     Active Substance: IRBESARTAN
     Indication: PROPHYLAXIS
     Dosage: UNK
     Route: 048
     Dates: start: 2001
  5. STEMETIL                           /00013304/ [Concomitant]
     Indication: VOMITING
  6. PMS-HYDROCHLOROTHIAZID [Concomitant]
     Indication: PROPHYLAXIS
     Dosage: UNK
     Route: 048
     Dates: start: 2001
  7. BENDAMUSTINE [Suspect]
     Active Substance: BENDAMUSTINE
     Indication: B-CELL LYMPHOMA
     Dosage: 163.8 MG, Q4WK
     Route: 042
     Dates: start: 20141016
  8. ALLOPURINOL. [Concomitant]
     Active Substance: ALLOPURINOL
     Indication: PROPHYLAXIS
     Dosage: UNK
     Route: 048
     Dates: start: 2006
  9. ARISTOCORT                         /00031901/ [Concomitant]
     Indication: PRURITUS
     Dosage: UNK
     Route: 061
     Dates: start: 2013
  10. COLCHICINE. [Concomitant]
     Active Substance: COLCHICINE
     Indication: PROPHYLAXIS
  11. NEUPOGEN [Concomitant]
     Active Substance: FILGRASTIM
     Indication: PROPHYLAXIS
     Dosage: UNK
     Route: 058
     Dates: start: 20141018, end: 20141024
  12. IDELALISIB [Suspect]
     Active Substance: IDELALISIB
     Indication: B-CELL LYMPHOMA
     Dosage: 150 MG, BID
     Route: 048
     Dates: start: 20141016, end: 20141029
  13. NORVASC [Concomitant]
     Active Substance: AMLODIPINE BESYLATE
     Indication: PROPHYLAXIS
     Dosage: UNK
     Route: 048
     Dates: start: 2001
  14. SYNTHROID [Concomitant]
     Active Substance: LEVOTHYROXINE SODIUM
     Indication: HYPOTHYROIDISM
     Dosage: UNK
     Route: 065
     Dates: start: 2007
  15. ZOFRAN                             /00955302/ [Concomitant]
     Indication: PROPHYLAXIS OF NAUSEA AND VOMITING
     Dosage: UNK
     Route: 042
     Dates: start: 20141016
  16. STEMETIL                           /00013304/ [Concomitant]
     Indication: NAUSEA
     Dosage: UNK
     Route: 048
     Dates: start: 20141019
  17. APO-HYDRALAZINE [Concomitant]
     Indication: PRURITUS
     Dosage: UNK
     Route: 048
     Dates: start: 2013
  18. METFORMIN [Concomitant]
     Active Substance: METFORMIN HYDROCHLORIDE
     Indication: DIABETES MELLITUS
     Dosage: UNK
     Route: 065
     Dates: start: 1994
  19. COLCHICINE. [Concomitant]
     Active Substance: COLCHICINE
     Indication: GOUT
     Dosage: UNK
     Route: 048
     Dates: start: 2006
  20. RITUXIMAB [Suspect]
     Active Substance: RITUXIMAB
     Indication: B-CELL LYMPHOMA
     Dosage: 682.5 MG, Q4WK
     Route: 042
     Dates: start: 20141016
  21. APO-LEVOCARB [Concomitant]
     Active Substance: CARBIDOPA\LEVODOPA
     Indication: PARKINSON^S DISEASE
     Dosage: UNK
     Route: 048
     Dates: start: 2004
  22. MAGLUCATE [Concomitant]
     Indication: HYPOMAGNESAEMIA
     Dosage: UNK
     Route: 048
     Dates: start: 2012
  23. TYLENOL [Concomitant]
     Active Substance: ACETAMINOPHEN
     Indication: ALLERGY PROPHYLAXIS
     Dosage: UNK
     Route: 048
     Dates: start: 20141016
  24. SOLU-MEDROL [Concomitant]
     Active Substance: METHYLPREDNISOLONE SODIUM SUCCINATE
     Indication: ALLERGY PROPHYLAXIS
     Dosage: UNK
     Route: 042
     Dates: start: 20141016

REACTIONS (3)
  - Fatigue [Recovered/Resolved with Sequelae]
  - Rash maculo-papular [Recovered/Resolved with Sequelae]
  - Dehydration [Recovered/Resolved]

NARRATIVE: CASE EVENT DATE: 20141025
